FAERS Safety Report 6390536-9 (Version None)
Quarter: 2009Q4

REPORT INFORMATION
  Report Type: 
  Country: None (occurrence: None)
  Receive Date: 20091002
  Receipt Date: 20091002
  Transmission Date: 20100525
  Serious: Yes (Death, Hospitalization, Other)
  Sender: FDA-Public Use
  Company Number: None

PATIENT
  Age: 49 Year
  Sex: Male
  Weight: 63.821 kg

DRUGS (4)
  1. GEMCITABINE [Suspect]
     Indication: BLADDER CANCER
     Dosage: DAYS 1,8 AND 15 MG/M**2 CYC IV
     Route: 042
     Dates: start: 20090410, end: 20090424
  2. CISPLATIN [Suspect]
     Indication: BLADDER CANCER
     Dosage: 139 MG/DAY IV
     Route: 042
     Dates: start: 20090410, end: 20090410
  3. PERCOCET [Concomitant]
  4. DOXYCYCLINE HYCLATE [Concomitant]

REACTIONS (6)
  - CARDIO-RESPIRATORY ARREST [None]
  - DEEP VEIN THROMBOSIS [None]
  - FATIGUE [None]
  - GENERAL PHYSICAL HEALTH DETERIORATION [None]
  - METASTATIC CARCINOMA OF THE BLADDER [None]
  - PULMONARY EMBOLISM [None]
